FAERS Safety Report 6020426-2 (Version None)
Quarter: 2008Q4

REPORT INFORMATION
  Report Type: 
  Country: None (occurrence: None)
  Receive Date: 20081226
  Receipt Date: 20081219
  Transmission Date: 20090506
  Serious: Yes (Life-Threatening)
  Sender: FDA-Public Use
  Company Number: GB-ROCHE-604058

PATIENT
  Age: 80 Year
  Sex: Male

DRUGS (5)
  1. CEFTRIAXONE [Suspect]
     Indication: CELLULITIS
     Dosage: DRUG WITHDRWN
     Route: 042
     Dates: start: 20081125, end: 20081127
  2. ALLOPURINOL [Concomitant]
     Indication: GOUT
     Route: 048
  3. AMLODIPINE [Concomitant]
     Route: 048
  4. OLMESARTAN MEDOXOMIL [Concomitant]
     Route: 048
  5. TAMSULOSIN HCL [Concomitant]
     Route: 048

REACTIONS (4)
  - CYANOSIS [None]
  - DIZZINESS [None]
  - DYSPNOEA [None]
  - PARAESTHESIA ORAL [None]
